FAERS Safety Report 25447037 (Version 1)
Quarter: 2025Q2

REPORT INFORMATION
  Report Type: Spontaneous
  Country: CA (occurrence: CA)
  Receive Date: 20250617
  Receipt Date: 20250617
  Transmission Date: 20250717
  Serious: Yes (Other)
  Sender: BIOMARIN
  Company Number: CA-BIOMARINAP-CA-2025-166585

PATIENT

DRUGS (2)
  1. KUVAN [Suspect]
     Active Substance: SAPROPTERIN DIHYDROCHLORIDE
     Indication: Phenylketonuria
     Dosage: 1600 MILLIGRAM, QD
     Route: 048
     Dates: start: 202501
  2. KUVAN [Suspect]
     Active Substance: SAPROPTERIN DIHYDROCHLORIDE
     Dosage: 1400 MILLIGRAM, QD
     Route: 048
     Dates: start: 20240920, end: 202501

REACTIONS (1)
  - Appendicectomy [Unknown]
